FAERS Safety Report 25322244 (Version 2)
Quarter: 2025Q2

REPORT INFORMATION
  Report Type: Spontaneous
  Country: DE (occurrence: DE)
  Receive Date: 20250516
  Receipt Date: 20250526
  Transmission Date: 20250717
  Serious: Yes (Other)
  Sender: ALEXION PHARMACEUTICALS
  Company Number: DE-AstraZeneca-CH-00869801AM

PATIENT

DRUGS (10)
  1. XIGDUO XR [Suspect]
     Active Substance: DAPAGLIFLOZIN PROPANEDIOL\METFORMIN HYDROCHLORIDE
     Indication: Diabetes mellitus
     Dosage: 1000 MICROGRAM, BID
  2. Bactoflor [Concomitant]
     Route: 065
  3. LACTULOSE [Concomitant]
     Active Substance: LACTULOSE
     Route: 065
  4. CANDESARTAN [Concomitant]
     Active Substance: CANDESARTAN
     Route: 065
  5. TORSEMIDE [Concomitant]
     Active Substance: TORSEMIDE
     Route: 065
  6. LEVOTHYROXINE SODIUM [Concomitant]
     Active Substance: LEVOTHYROXINE SODIUM
     Route: 065
  7. PANTOPRAZOLE [Concomitant]
     Active Substance: PANTOPRAZOLE
     Route: 065
  8. KISQALI FEMARA CO-PACK [Concomitant]
     Active Substance: LETROZOLE\RIBOCICLIB SUCCINATE
     Route: 065
  9. LETROZOLE [Concomitant]
     Active Substance: LETROZOLE
     Route: 065
  10. ENEMA (SODIUM PHOSPHATE, DIBASIC\SODIUM PHOSPHATE, MONOBASIC) [Suspect]
     Active Substance: SODIUM PHOSPHATE, DIBASIC\SODIUM PHOSPHATE, MONOBASIC
     Route: 065

REACTIONS (5)
  - Gastrointestinal disorder [Not Recovered/Not Resolved]
  - Metastasis [Unknown]
  - Constipation [Not Recovered/Not Resolved]
  - Wrong technique in product usage process [Unknown]
  - Dyspepsia [Not Recovered/Not Resolved]
